FAERS Safety Report 23987837 (Version 2)
Quarter: 2024Q2

REPORT INFORMATION
  Report Type: Spontaneous
  Country: CA (occurrence: None)
  Receive Date: 20240619
  Receipt Date: 20240620
  Transmission Date: 20240716
  Serious: Yes (Other)
  Sender: FDA-Public Use
  Company Number: 2024A136219

PATIENT
  Age: 65 Year
  Sex: Female

DRUGS (19)
  1. ROPIVACAINE HYDROCHLORIDE [Suspect]
     Active Substance: ROPIVACAINE HYDROCHLORIDE
  2. ROSUVASTATIN [Suspect]
     Active Substance: ROSUVASTATIN
  3. ADVAIR HFA [Suspect]
     Active Substance: FLUTICASONE PROPIONATE\SALMETEROL XINAFOATE
  4. AMLODIPINE BESYLATE [Suspect]
     Active Substance: AMLODIPINE BESYLATE
  5. CALCIUM [Suspect]
     Active Substance: CALCIUM
  6. CIPROFLOXACIN HYDROCHLORIDE [Suspect]
     Active Substance: CIPROFLOXACIN HYDROCHLORIDE
  7. CLONAZEPAM [Suspect]
     Active Substance: CLONAZEPAM
     Route: 048
  8. ERGOCALCIFEROL [Suspect]
     Active Substance: ERGOCALCIFEROL
  9. FOLATE SODIUM [Suspect]
     Active Substance: FOLATE SODIUM
  10. HYDROMORPHONE HYDROCHLORIDE [Suspect]
     Active Substance: HYDROMORPHONE HYDROCHLORIDE
     Route: 030
  11. MOXIFLOXACIN [Suspect]
     Active Substance: MOXIFLOXACIN
  12. PREDNISONE [Suspect]
     Active Substance: PREDNISONE
  13. QVAR [Suspect]
     Active Substance: BECLOMETHASONE DIPROPIONATE
  14. RISEDRONATE SODIUM [Suspect]
     Active Substance: RISEDRONATE SODIUM
  15. RITUXIMAB [Suspect]
     Active Substance: RITUXIMAB
  16. SINGULAIR [Suspect]
     Active Substance: MONTELUKAST SODIUM
  17. THEOPHYLLINE [Suspect]
     Active Substance: THEOPHYLLINE
  18. TRAMADOL HYDROCHLORIDE [Suspect]
     Active Substance: TRAMADOL HYDROCHLORIDE
  19. XOLAIR [Suspect]
     Active Substance: OMALIZUMAB

REACTIONS (7)
  - Asthma [Unknown]
  - Drug hypersensitivity [Unknown]
  - Dyspnoea [Unknown]
  - Oedema [Unknown]
  - Pneumonia [Unknown]
  - Vomiting [Unknown]
  - Wheezing [Unknown]
